FAERS Safety Report 10396612 (Version 1)
Quarter: 2014Q3

REPORT INFORMATION
  Report Type: Spontaneous
  Country: JP (occurrence: None)
  Receive Date: 20140818
  Receipt Date: 20140818
  Transmission Date: 20150326
  Serious: Yes (Other)
  Sender: FDA-Public Use
  Company Number: ADR-2014-01441

PATIENT
  Age: 42 Year
  Sex: Female

DRUGS (2)
  1. GABALON INTRATHECAL [Suspect]
     Active Substance: BACLOFEN
     Indication: DYSTONIA
  2. DRUG/ANESTHETIC [Suspect]
     Active Substance: UNSPECIFIED INGREDIENT

REACTIONS (1)
  - Delayed recovery from anaesthesia [None]

NARRATIVE: CASE EVENT DATE: 20140806
